FAERS Safety Report 7269166-2 (Version None)
Quarter: 2011Q1

REPORT INFORMATION
  Report Type: 
  Country: None (occurrence: None)
  Receive Date: 20110202
  Receipt Date: 20110126
  Transmission Date: 20110831
  Serious: No
  Sender: FDA-Public Use
  Company Number: US-PFIZER INC-2011019593

PATIENT
  Sex: Female

DRUGS (3)
  1. FIORICET [Suspect]
     Dosage: UNK
  2. LORCET-HD [Suspect]
     Dosage: UNK
  3. XANAX [Suspect]
     Dosage: UNK

REACTIONS (6)
  - PELVIC PROLAPSE [None]
  - ANXIETY [None]
  - HEADACHE [None]
  - NERVOUSNESS [None]
  - PAIN [None]
  - NERVE ROOT COMPRESSION [None]
